FAERS Safety Report 11238510 (Version 2)
Quarter: 2016Q1

REPORT INFORMATION
  Report Type: Spontaneous
  Country: SE (occurrence: SE)
  Receive Date: 20150705
  Receipt Date: 20160204
  Transmission Date: 20160525
  Serious: Yes (Death)
  Sender: FDA-Public Use
  Company Number: SE-TEVA-574174USA

PATIENT
  Sex: Male

DRUGS (1)
  1. RIBOVACT [Suspect]
     Active Substance: BENDAMUSTINE HYDROCHLORIDE
     Indication: B-CELL LYMPHOMA
     Dosage: UNK, UNKNOWN FREQ.
     Route: 042
     Dates: end: 20150123

REACTIONS (1)
  - Kawasaki^s disease [Fatal]

NARRATIVE: CASE EVENT DATE: 2015
